FAERS Safety Report 4888557-8 (Version None)
Quarter: 2005Q4

REPORT INFORMATION
  Report Type: 
  Country: None (occurrence: None)
  Receive Date: 20051215
  Receipt Date: 20050425
  Transmission Date: 20060501
  Serious: Yes (Other)
  Sender: FDA-Public Use
  Company Number: 2005064881

PATIENT
  Age: 45 Year
  Sex: Female
  Weight: 90.7194 kg

DRUGS (4)
  1. BEXTRA [Suspect]
     Indication: RHEUMATOID ARTHRITIS
     Dosage: 10 MG (10 MG, 1 IN 1 D), ORAL
     Route: 048
     Dates: start: 20040101, end: 20050401
  2. ALLERGY MEDICATION (ALLERGY MEDICATION) [Concomitant]
  3. ROFECOXIB [Concomitant]
  4. NAPROXEN SODIUM [Concomitant]

REACTIONS (16)
  - ATRIOVENTRICULAR BLOCK [None]
  - BLISTER [None]
  - CHEST PAIN [None]
  - DRY SKIN [None]
  - ERYTHEMA [None]
  - NASAL ULCER [None]
  - NASOPHARYNGITIS [None]
  - OSTEOARTHRITIS [None]
  - PAIN [None]
  - PRURITUS [None]
  - SINUSITIS [None]
  - SKIN DEPIGMENTATION [None]
  - SKIN DISORDER [None]
  - SKIN EXFOLIATION [None]
  - TENDERNESS [None]
  - WOUND HAEMORRHAGE [None]
